FAERS Safety Report 8914797 (Version 2)
Quarter: 2018Q3

REPORT INFORMATION
  Report Type: Spontaneous
  Country: US (occurrence: US)
  Receive Date: 20121119
  Receipt Date: 20180914
  Transmission Date: 20181010
  Serious: Yes (Hospitalization)
  Sender: FDA-Public Use
  Company Number: US-ASTRAZENECA-2012SE84607

PATIENT
  Age: 40 Year
  Sex: Female
  Weight: 93 kg

DRUGS (5)
  1. SYMBICORT [Suspect]
     Active Substance: BUDESONIDE\FORMOTEROL FUMARATE DIHYDRATE
     Indication: ASTHMA
     Dosage: 160/4.5 MCG 2 PUFFS TWO TIMES A DAY
     Route: 055
  2. PROAIR HFA [Concomitant]
     Active Substance: ALBUTEROL SULFATE
     Indication: ASTHMA
     Dosage: AS REQUIRED
  3. MUSCINEX [Concomitant]
     Indication: UPPER-AIRWAY COUGH SYNDROME
  4. MONTELUKAST [Concomitant]
     Active Substance: MONTELUKAST SODIUM
  5. ZYRTEC [Concomitant]
     Active Substance: CETIRIZINE HYDROCHLORIDE
     Indication: MULTIPLE ALLERGIES
     Dosage: DAILY

REACTIONS (10)
  - Drug dose omission [Unknown]
  - Insurance issue [Unknown]
  - Asthma [Unknown]
  - Dyspnoea [Unknown]
  - Sinusitis [Not Recovered/Not Resolved]
  - Panic attack [Unknown]
  - Nephrolithiasis [Not Recovered/Not Resolved]
  - Hypersensitivity [Not Recovered/Not Resolved]
  - Cough [Not Recovered/Not Resolved]
  - Intentional product misuse [Unknown]
